FAERS Safety Report 22197073 (Version 1)
Quarter: 2023Q2

REPORT INFORMATION
  Report Type: Spontaneous
  Country: US (occurrence: None)
  Receive Date: 20230410
  Receipt Date: 20230410
  Transmission Date: 20230721
  Serious: No
  Sender: FDA-Public Use
  Company Number: None

PATIENT
  Age: 46 Year
  Sex: Female
  Weight: 60.75 kg

DRUGS (12)
  1. TALTZ [Suspect]
     Active Substance: IXEKIZUMAB
     Indication: Psoriatic arthropathy
     Dosage: FREQUENCY : MONTHLY;?
     Route: 058
     Dates: start: 20230326
  2. TALTZ [Suspect]
     Active Substance: IXEKIZUMAB
     Indication: Psoriasis
  3. TALTZ [Suspect]
     Active Substance: IXEKIZUMAB
     Indication: Polychondritis
  4. TALTZ [Suspect]
     Active Substance: IXEKIZUMAB
     Indication: Spondylitis
  5. LORAZEPAM [Concomitant]
     Active Substance: LORAZEPAM
  6. AMITIZA [Concomitant]
     Active Substance: LUBIPROSTONE
  7. TRAMADOL [Concomitant]
     Active Substance: TRAMADOL
  8. UNSPECIFIED INGREDIENT [Concomitant]
     Active Substance: UNSPECIFIED INGREDIENT
  9. MAGNESIUM [Concomitant]
     Active Substance: MAGNESIUM
  10. Prenatal gummy vitamin [Concomitant]
  11. CALCIUM [Concomitant]
     Active Substance: CALCIUM
  12. VITAMIN D [Concomitant]
     Active Substance: VITAMIN D NOS

REACTIONS (14)
  - Abdominal pain upper [None]
  - Gastrointestinal sounds abnormal [None]
  - Abdominal distension [None]
  - Gastrooesophageal reflux disease [None]
  - Flatulence [None]
  - Dyspepsia [None]
  - Malaise [None]
  - Dyspepsia [None]
  - Headache [None]
  - Fatigue [None]
  - Abdominal pain [None]
  - Blepharitis [None]
  - Eye pain [None]
  - Ocular discomfort [None]
